FAERS Safety Report 6357024-7 (Version None)
Quarter: 2009Q3

REPORT INFORMATION
  Report Type: 
  Country: None (occurrence: None)
  Receive Date: 20090915
  Receipt Date: 20081126
  Transmission Date: 20100115
  Serious: Yes (Other)
  Sender: FDA-Public Use
  Company Number: US-ABBOTT-08P-163-0488641-00

PATIENT
  Sex: Male
  Weight: 19.976 kg

DRUGS (7)
  1. DEPAKOTE [Suspect]
     Indication: CONVULSION
     Route: 048
     Dates: start: 20050101, end: 20081025
  2. DEPAKOTE [Suspect]
     Route: 048
     Dates: start: 20081026, end: 20081029
  3. DEPAKOTE [Suspect]
     Route: 048
     Dates: start: 20081030
  4. DEPAKOTE [Suspect]
     Route: 048
     Dates: start: 20081115
  5. LEVETIRACETAM [Concomitant]
     Indication: CONVULSION
     Route: 048
     Dates: start: 20060101
  6. CLONAZEPAM [Concomitant]
     Indication: CONVULSION
     Route: 048
     Dates: start: 20060101
  7. VERSAD [Concomitant]
     Indication: CONVULSION
     Route: 045

REACTIONS (2)
  - CONVULSION [None]
  - DRUG LEVEL DECREASED [None]
